FAERS Safety Report 15667988 (Version 3)
Quarter: 2019Q2

REPORT INFORMATION
  Report Type: Spontaneous
  Country: US (occurrence: US)
  Receive Date: 20181128
  Receipt Date: 20190403
  Transmission Date: 20190711
  Serious: No
  Sender: FDA-Public Use
  Company Number: US-ASTRAZENECA-2018SF45973

PATIENT
  Sex: Female

DRUGS (1)
  1. TUDORZA PRESSAIR [Suspect]
     Active Substance: ACLIDINIUM BROMIDE
     Indication: EMPHYSEMA
     Dosage: 400.0UG UNKNOWN
     Route: 055

REACTIONS (4)
  - Irritability [Unknown]
  - Amnesia [Unknown]
  - Device malfunction [Unknown]
  - Intentional product misuse [Unknown]
